FAERS Safety Report 5042363-2 (Version None)
Quarter: 2006Q2

REPORT INFORMATION
  Report Type: 
  Country: None (occurrence: None)
  Receive Date: 20060627
  Receipt Date: 20060613
  Transmission Date: 20061013
  Serious: Yes (Life-Threatening, Hospitalization, Other)
  Sender: FDA-Public Use
  Company Number: HQWYE206713JUN06

PATIENT
  Age: 72 Year
  Sex: Male

DRUGS (2)
  1. EFFEXOR [Suspect]
  2. TRANYLCYPROMINE (TRANYLCYPROMINE, ) [Suspect]

REACTIONS (9)
  - DRUG INTERACTION [None]
  - HYPERKALAEMIA [None]
  - HYPERTENSION [None]
  - METABOLIC ACIDOSIS [None]
  - MYOCLONIC EPILEPSY [None]
  - RESPIRATORY FAILURE [None]
  - SEROTONIN SYNDROME [None]
  - TACHYCARDIA [None]
  - WRONG DRUG ADMINISTERED [None]
